FAERS Safety Report 20813304 (Version 1)
Quarter: 2022Q2

REPORT INFORMATION
  Report Type: Spontaneous
  Country: US (occurrence: US)
  Receive Date: 20220511
  Receipt Date: 20220511
  Transmission Date: 20220720
  Serious: Yes (Death, Life-Threatening, Hospitalization, Other)
  Sender: FDA-Public Use
  Company Number: US-AMGEN-USASP2022077888

PATIENT
  Age: 28 Year
  Sex: Male

DRUGS (2)
  1. XGEVA [Suspect]
     Active Substance: DENOSUMAB
     Indication: Hypercalcaemia of malignancy
     Dosage: 120 MILLIGRAM, QWK
     Route: 058
  2. CINACALCET HYDROCHLORIDE [Suspect]
     Active Substance: CINACALCET HYDROCHLORIDE
     Indication: Hypercalcaemia of malignancy
     Dosage: UNK
     Route: 065

REACTIONS (12)
  - Death [Fatal]
  - Hypercalcaemia [Unknown]
  - Blood parathyroid hormone decreased [Unknown]
  - Blood 1,25-dihydroxycholecalciferol increased [Unknown]
  - Neuroendocrine carcinoma metastatic [Unknown]
  - Fall [Unknown]
  - Subarachnoid haemorrhage [Unknown]
  - Pneumonia [Unknown]
  - Therapeutic product effect incomplete [Unknown]
  - Drug effective for unapproved indication [Unknown]
  - Off label use [Unknown]
  - Malnutrition [Unknown]
